FAERS Safety Report 17846049 (Version 1)
Quarter: 2020Q2

REPORT INFORMATION
  Report Type: Spontaneous
  Country: US (occurrence: US)
  Receive Date: 20200601
  Receipt Date: 20200601
  Transmission Date: 20200714
  Serious: No
  Sender: FDA-Public Use
  Company Number: US-AJANTA PHARMA USA INC.-2085314

PATIENT
  Age: 58 Year
  Sex: Female
  Weight: 59.09 kg

DRUGS (3)
  1. OFEV [Concomitant]
     Active Substance: NINTEDANIB
  2. TADALAFIL (ANDA 210392) [Suspect]
     Active Substance: TADALAFIL
  3. BOSENTAN. [Suspect]
     Active Substance: BOSENTAN
     Route: 048
     Dates: start: 20190718

REACTIONS (2)
  - Dizziness [Recovering/Resolving]
  - Hypotension [Recovering/Resolving]
